FAERS Safety Report 5104653-4 (Version None)
Quarter: 2006Q3

REPORT INFORMATION
  Report Type: 
  Country: None (occurrence: None)
  Receive Date: 20060911
  Receipt Date: 20060825
  Transmission Date: 20061208
  Serious: Yes (Other)
  Sender: FDA-Public Use
  Company Number: DE-GDP-0613450

PATIENT
  Age: 75 Year
  Sex: Female

DRUGS (1)
  1. METVIXIA [Suspect]
     Indication: ACTINIC KERATOSIS
     Dosage: 1 APP ONCE TP
     Route: 061
     Dates: start: 20060621, end: 20060621

REACTIONS (4)
  - EYE SWELLING [None]
  - KERATITIS [None]
  - SCAB [None]
  - SKIN IRRITATION [None]
